FAERS Safety Report 8440586 (Version 3)
Quarter: 2012Q4

REPORT INFORMATION
  Report Type: Report from Study
  Country: CO (occurrence: CO)
  Receive Date: 20120305
  Receipt Date: 20120906
  Transmission Date: 20130627
  Serious: Yes (Death, Other)
  Sender: FDA-Public Use
  Company Number: CO-PFIZER INC-2012056855

PATIENT
  Age: 78 Year
  Sex: Male

DRUGS (6)
  1. LIPITOR [Suspect]
     Indication: DYSLIPIDAEMIA
     Dosage: 20 mg, 1x/day
     Route: 048
     Dates: start: 20071003
  2. HYDROCHLOROTHIAZIDE\OLMESARTAN MEDOXOMI [Suspect]
     Indication: HYPERTENSION
     Dosage: Olmesartan medoxomil 20 mg/hydrochlorothiazide 12.5 mg. daily
     Dates: start: 20071003
  3. HYDROCHLOROTHIAZIDE [Concomitant]
     Indication: HYPERTENSION
     Dosage: 25 mg, 1x/day
     Route: 048
  4. LOSARTAN [Concomitant]
     Indication: HYPERTENSION
     Dosage: 25 mg, 1x/day
     Route: 048
  5. ASA [Concomitant]
     Dosage: 100 mg, 1x/day
  6. TIMOLOL MALEATE [Concomitant]
     Dosage: 2.5 mg, 2x/day
     Route: 047

REACTIONS (1)
  - Death [Fatal]
